FAERS Safety Report 4390817-4 (Version None)
Quarter: 2004Q3

REPORT INFORMATION
  Report Type: 
  Country: None (occurrence: None)
  Receive Date: 20040707
  Receipt Date: 20040702
  Transmission Date: 20050211
  Serious: Yes (Hospitalization)
  Sender: FDA-Public Use
  Company Number: 200411573DE

PATIENT
  Age: 66 Year
  Sex: Female

DRUGS (3)
  1. TAXOTERE [Suspect]
     Indication: BREAST CANCER
     Route: 042
     Dates: start: 20030515, end: 20030515
  2. DOXORUBICIN [Suspect]
     Indication: BREAST CANCER
     Dates: start: 20030515, end: 20030515
  3. CYCLOPHOSPHAMIDE [Suspect]
     Indication: BREAST CANCER
     Dates: start: 20030515, end: 20030515

REACTIONS (4)
  - DIARRHOEA [None]
  - DIZZINESS [None]
  - LEUKOPENIA [None]
  - THROMBOCYTOPENIA [None]
